FAERS Safety Report 5839528-6 (Version None)
Quarter: 2008Q3

REPORT INFORMATION
  Report Type: 
  Country: None (occurrence: None)
  Receive Date: 20080807
  Receipt Date: 20080805
  Transmission Date: 20090109
  Serious: Yes (Other)
  Sender: FDA-Public Use
  Company Number: A0741267A

PATIENT
  Age: 85 Year
  Sex: Female

DRUGS (1)
  1. METHYLCELLULOSE SUSPENSION (METHYLCELLULOSE) SUGAR FREE ORANGE [Suspect]
     Indication: DRUG USE FOR UNKNOWN INDICATION

REACTIONS (1)
  - BLADDER CANCER [None]
